FAERS Safety Report 26084913 (Version 1)
Quarter: 2025Q4

REPORT INFORMATION
  Report Type: Spontaneous
  Country: US (occurrence: US)
  Receive Date: 20251124
  Receipt Date: 20251124
  Transmission Date: 20260117
  Serious: Yes (Hospitalization)
  Sender: SANOFI AVENTIS
  Company Number: US-SA-2025SA342123

PATIENT
  Age: 82 Year
  Sex: Male

DRUGS (26)
  1. TOUJEO [Suspect]
     Active Substance: INSULIN GLARGINE
     Dosage: UNK
  2. INSULIN LISPRO [Suspect]
     Active Substance: INSULIN LISPRO
     Dosage: 16 IU
  3. INSULIN LISPRO [Suspect]
     Active Substance: INSULIN LISPRO
     Dosage: 12 IU
  4. KORLYM [Suspect]
     Active Substance: MIFEPRISTONE
     Indication: Cushing^s syndrome
     Dosage: 300 MG, QD
     Route: 048
     Dates: start: 20250209, end: 202503
  5. KORLYM [Suspect]
     Active Substance: MIFEPRISTONE
     Dosage: 600 MG, QD
     Route: 048
     Dates: start: 202503, end: 20250316
  6. KORLYM [Suspect]
     Active Substance: MIFEPRISTONE
     Dosage: 600 MG, QD
     Route: 048
     Dates: start: 202503, end: 2025
  7. KORLYM [Suspect]
     Active Substance: MIFEPRISTONE
     Dosage: 600.000MG QD
     Route: 048
     Dates: start: 202505, end: 2025
  8. KORLYM [Suspect]
     Active Substance: MIFEPRISTONE
     Dosage: 900 MG, QD
     Route: 048
     Dates: start: 2025
  9. LOSARTAN [Concomitant]
     Active Substance: LOSARTAN
  10. TAMSULOSIN [Concomitant]
     Active Substance: TAMSULOSIN
  11. ELIQUIS [Concomitant]
     Active Substance: APIXABAN
  12. ROSUVASTATIN [Concomitant]
     Active Substance: ROSUVASTATIN
  13. CIPRO [Concomitant]
     Active Substance: CIPROFLOXACIN HYDROCHLORIDE
  14. ASPIRIN [Concomitant]
     Active Substance: ASPIRIN
  15. MOUNJARO [Concomitant]
     Active Substance: TIRZEPATIDE
  16. BACLOFEN [Concomitant]
     Active Substance: BACLOFEN
  17. PIOGLITAZONE [Concomitant]
     Active Substance: PIOGLITAZONE
  18. PRAMIPEXOLE [Concomitant]
     Active Substance: PRAMIPEXOLE
  19. CELECOXIB [Concomitant]
     Active Substance: CELECOXIB
  20. PREGABALIN [Concomitant]
     Active Substance: PREGABALIN
  21. SYNJARDY XR [Concomitant]
     Active Substance: EMPAGLIFLOZIN\METFORMIN HYDROCHLORIDE
  22. DIETARY SUPPLEMENT\HERBALS [Concomitant]
     Active Substance: DIETARY SUPPLEMENT\HERBALS
  23. MINERALS\VITAMINS [Concomitant]
     Active Substance: MINERALS\VITAMINS
  24. MELATONIN [Concomitant]
     Active Substance: MELATONIN
  25. VITAMIN D3 [Concomitant]
     Active Substance: CHOLECALCIFEROL
  26. VITAMIN D NOS [Concomitant]
     Active Substance: CHOLECALCIFEROL\ERGOCALCIFEROL

REACTIONS (7)
  - Fall [Recovered/Resolved]
  - Head injury [Recovered/Resolved]
  - Cystitis [Unknown]
  - Blood pressure systolic increased [Recovered/Resolved]
  - Blood pressure systolic decreased [Unknown]
  - Blood glucose decreased [Not Recovered/Not Resolved]
  - Blood glucose increased [Unknown]

NARRATIVE: CASE EVENT DATE: 20250101
